FAERS Safety Report 4403221-7 (Version None)
Quarter: 2004Q3

REPORT INFORMATION
  Report Type: 
  Country: None (occurrence: None)
  Receive Date: 20040721
  Receipt Date: 20040319
  Transmission Date: 20050211
  Serious: No
  Sender: FDA-Public Use
  Company Number: US-GLAXOSMITHKLINE-A0503519A

PATIENT
  Sex: Female

DRUGS (7)
  1. IMITREX [Suspect]
     Indication: MIGRAINE
     Dosage: 25MG PER DAY
     Route: 048
  2. LEXAPRO [Concomitant]
  3. ULTRAM [Concomitant]
  4. XANAX [Concomitant]
  5. VICODIN ES [Concomitant]
  6. BENTYL [Concomitant]
  7. THYROID TAB [Concomitant]

REACTIONS (1)
  - NAUSEA [None]
